FAERS Safety Report 6776022-2 (Version None)
Quarter: 2010Q2

REPORT INFORMATION
  Report Type: 
  Country: None (occurrence: None)
  Receive Date: 20100615
  Receipt Date: 20100607
  Transmission Date: 20101027
  Serious: Yes (Hospitalization)
  Sender: FDA-Public Use
  Company Number: US-002004

PATIENT
  Sex: Male
  Weight: 57.2893 kg

DRUGS (6)
  1. SOMATROPIN RDNA [Suspect]
     Indication: GROWTH HORMONE DEFICIENCY
     Dosage: 2.8 MG QD SUBCUTANEOUS
     Route: 058
     Dates: start: 20100123, end: 20100301
  2. ACTIGALL [Concomitant]
  3. HYDROCORTISONE [Concomitant]
  4. MULTIVITAMINS PLUS IRON [Concomitant]
  5. OS-CAL + D [Concomitant]
  6. PEPCID AC [Concomitant]

REACTIONS (5)
  - ARTHRALGIA [None]
  - ASTHENIA [None]
  - BONE PAIN [None]
  - NEUTROPHIL COUNT DECREASED [None]
  - SOMNOLENCE [None]
